FAERS Safety Report 16215031 (Version 1)
Quarter: 2019Q2

REPORT INFORMATION
  Report Type: Spontaneous
  Country: US (occurrence: US)
  Receive Date: 20190418
  Receipt Date: 20190418
  Transmission Date: 20190711
  Serious: Yes (Hospitalization)
  Sender: FDA-Public Use
  Company Number: None

PATIENT
  Age: 72 Year
  Weight: 82 kg

DRUGS (1)
  1. YESCARTA [Suspect]
     Active Substance: AXICABTAGENE CILOLEUCEL
     Indication: DIFFUSE LARGE B-CELL LYMPHOMA
     Dosage: ?          OTHER FREQUENCY:ONCE;?
     Route: 041

REACTIONS (9)
  - Hypotension [None]
  - Headache [None]
  - Neurotoxicity [None]
  - Pyrexia [None]
  - Cytokine release syndrome [None]
  - Pain [None]
  - Dizziness [None]
  - Sepsis [None]
  - Aphasia [None]

NARRATIVE: CASE EVENT DATE: 20190316
